FAERS Safety Report 17763627 (Version 1)
Quarter: 2020Q2

REPORT INFORMATION
  Report Type: Spontaneous
  Country: US (occurrence: US)
  Receive Date: 20200509
  Receipt Date: 20200509
  Transmission Date: 20200714
  Serious: Yes (Death, Other)
  Sender: FDA-Public Use
  Company Number: US-TEVA-2020-US-1233015

PATIENT
  Sex: Female

DRUGS (5)
  1. DIAZEPAM. [Suspect]
     Active Substance: DIAZEPAM
     Route: 065
  2. ALPRAZOLAM. [Suspect]
     Active Substance: ALPRAZOLAM
     Route: 065
  3. HEROIN [Suspect]
     Active Substance: DIAMORPHINE
     Route: 065
  4. MDMA [Suspect]
     Active Substance: MIDOMAFETAMINE
     Route: 065
  5. COCAINE [Suspect]
     Active Substance: COCAINE
     Route: 065

REACTIONS (2)
  - Death [Fatal]
  - Overdose [Unknown]
